FAERS Safety Report 25628071 (Version 1)
Quarter: 2025Q3

REPORT INFORMATION
  Report Type: Report from Study
  Country: US (occurrence: US)
  Receive Date: 20250731
  Receipt Date: 20250731
  Transmission Date: 20251021
  Serious: Yes (Other)
  Sender: TAKEDA
  Company Number: US-TAKEDA-2025TUS037337

PATIENT
  Age: 58 Year
  Sex: Male

DRUGS (6)
  1. FRUQUINTINIB [Suspect]
     Active Substance: FRUQUINTINIB
     Indication: Rectal cancer
  2. FRUQUINTINIB [Suspect]
     Active Substance: FRUQUINTINIB
  3. ASPIRIN [Concomitant]
     Active Substance: ASPIRIN
  4. PROCHLORPERAZINE MALEATE [Concomitant]
     Active Substance: PROCHLORPERAZINE MALEATE
  5. TYLENOL [Concomitant]
     Active Substance: ACETAMINOPHEN
  6. IBUPROFEN [Concomitant]
     Active Substance: IBUPROFEN

REACTIONS (10)
  - Rectal cancer [Unknown]
  - Visual impairment [Unknown]
  - Dysphonia [Not Recovered/Not Resolved]
  - Gingival pain [Recovered/Resolved]
  - Epistaxis [Unknown]
  - Blood pressure increased [Unknown]
  - Viral infection [Not Recovered/Not Resolved]
  - Product dose omission issue [Recovered/Resolved]
  - Nasopharyngitis [Not Recovered/Not Resolved]
  - Fatigue [Not Recovered/Not Resolved]

NARRATIVE: CASE EVENT DATE: 20250408
